FAERS Safety Report 24428612 (Version 1)
Quarter: 2024Q4

REPORT INFORMATION
  Report Type: Report from Study
  Country: MX (occurrence: MX)
  Receive Date: 20241011
  Receipt Date: 20241011
  Transmission Date: 20250114
  Serious: Yes (Disabling)
  Sender: ABBVIE
  Company Number: MX-ABBVIE-5958755

PATIENT
  Sex: Male
  Weight: 57 kg

DRUGS (3)
  1. VENCLEXTA [Suspect]
     Active Substance: VENETOCLAX
     Indication: Chronic lymphocytic leukaemia
     Dosage: 2 TABLETS??FORM STRENGTH: 10 MG
     Route: 048
     Dates: start: 20240929, end: 20240930
  2. OBINUTUZUMAB [Concomitant]
     Active Substance: OBINUTUZUMAB
     Indication: Product used for unknown indication
  3. IMBRUVICA [Concomitant]
     Active Substance: IBRUTINIB
     Indication: Product used for unknown indication

REACTIONS (3)
  - Proctalgia [Recovering/Resolving]
  - Diarrhoea [Recovered/Resolved]
  - Platelet count decreased [Recovering/Resolving]

NARRATIVE: CASE EVENT DATE: 20240101
